FAERS Safety Report 4697614-0 (Version None)
Quarter: 2005Q2

REPORT INFORMATION
  Report Type: 
  Country: None (occurrence: None)
  Receive Date: 20050620
  Receipt Date: 20050519
  Transmission Date: 20051028
  Serious: No
  Sender: FDA-Public Use
  Company Number: US-YAMANOUCHI-YPA20050262

PATIENT
  Sex: Female

DRUGS (2)
  1. VESICARE [Suspect]
  2. INDERAL LA [Concomitant]

REACTIONS (1)
  - CHEST DISCOMFORT [None]
